FAERS Safety Report 10853598 (Version 1)
Quarter: 2015Q1

REPORT INFORMATION
  Report Type: Spontaneous
  Country: None (occurrence: None)
  Receive Date: 20150218
  Receipt Date: 20150218
  Transmission Date: 20150721
  Serious: Yes (Hospitalization)
  Sender: FDA-Public Use
  Company Number: None

PATIENT
  Age: 43 Year
  Sex: Male
  Weight: 99.2 kg

DRUGS (1)
  1. INTRON A [Suspect]
     Active Substance: INTERFERON ALFA-2B
     Dosage: 220 MU
     Dates: end: 20121012

REACTIONS (5)
  - Neutrophil count decreased [None]
  - Stomatitis [None]
  - Erectile dysfunction [None]
  - White blood cell count decreased [None]
  - Influenza like illness [None]

NARRATIVE: CASE EVENT DATE: 20120215
